FAERS Safety Report 7591784-2 (Version None)
Quarter: 2011Q2

REPORT INFORMATION
  Report Type: 
  Country: None (occurrence: None)
  Receive Date: 20110627
  Receipt Date: 20110620
  Transmission Date: 20111010
  Serious: Yes (Death)
  Sender: FDA-Public Use
  Company Number: 2011SP028964

PATIENT
  Age: 37 Year
  Sex: Male

DRUGS (7)
  1. IRRIBOW (RAMOSETRON HYDROCHLORIDE) [Suspect]
     Indication: PRODUCT USED FOR UNKNOWN INDICATION
     Dosage: 5 MCG; PO
     Route: 048
     Dates: start: 20100101, end: 20110617
  2. FLUNITRAZEPAM [Concomitant]
  3. MIRTAZAPINE [Suspect]
     Indication: DEPRESSION
     Dosage: 15 MG;QD;PO,  30 MG;QD;PO, 45 MG;QD;PO
     Route: 048
     Dates: start: 20110517, end: 20110617
  4. MIRTAZAPINE [Suspect]
     Indication: DEPRESSION
     Dosage: 15 MG;QD;PO,  30 MG;QD;PO, 45 MG;QD;PO
     Route: 048
     Dates: start: 20101214, end: 20110516
  5. MIRTAZAPINE [Suspect]
     Indication: DEPRESSION
     Dosage: 15 MG;QD;PO,  30 MG;QD;PO, 45 MG;QD;PO
     Route: 048
     Dates: start: 20101130, end: 20101213
  6. ZOPICLONE [Concomitant]
  7. LEVOMEPROMAZINE MALEATE [Concomitant]

REACTIONS (3)
  - INTENTIONAL OVERDOSE [None]
  - HAEMATEMESIS [None]
  - COMPLETED SUICIDE [None]
